FAERS Safety Report 6603979-2 (Version None)
Quarter: 2010Q1

REPORT INFORMATION
  Report Type: 
  Country: None (occurrence: None)
  Receive Date: 20100226
  Receipt Date: 20090325
  Transmission Date: 20100710
  Serious: No
  Sender: FDA-Public Use
  Company Number: A0776491A

PATIENT
  Sex: Female

DRUGS (2)
  1. LAMOTRIGINE [Suspect]
     Dates: start: 20080101, end: 20080101
  2. TOPAMAX [Concomitant]

REACTIONS (2)
  - ADVERSE EVENT [None]
  - BIPOLAR DISORDER [None]
